FAERS Safety Report 8983283 (Version 1)
Quarter: 2012Q4

REPORT INFORMATION
  Report Type: 
  Country: JP (occurrence: JP)
  Receive Date: 20121224
  Receipt Date: 20121224
  Transmission Date: 20130627
  Serious: Yes (Disabling, Other)
  Sender: FDA-Public Use
  Company Number: PHHY2010JP20502

PATIENT
  Age: 81 Year
  Sex: Female
  Weight: 31 kg

DRUGS (8)
  1. ICL670A [Suspect]
     Indication: IRON OVERLOAD
     Dosage: 500 mg, daily
     Route: 048
     Dates: start: 20080807, end: 20080828
  2. ICL670A [Suspect]
     Dosage: 250 mg, daily
     Route: 048
     Dates: start: 20080829, end: 20090205
  3. ICL670A [Suspect]
     Dosage: 125 mg, daily
     Route: 048
     Dates: start: 20090206, end: 20090731
  4. ZOMETA [Concomitant]
     Indication: MULTIPLE MYELOMA
     Dosage: UNK UKN, UNK
     Route: 042
     Dates: start: 2007, end: 20091023
  5. PREDONINE [Concomitant]
     Indication: MULTIPLE MYELOMA
     Dosage: 10 mg, UNK
     Route: 048
     Dates: start: 2007, end: 20091023
  6. ARICEPT [Concomitant]
     Dosage: 5 mg, UNK
     Route: 048
     Dates: start: 2007, end: 20091023
  7. OMEPRAL [Concomitant]
     Dosage: 20 mg, UNK
     Route: 048
     Dates: start: 2007, end: 20091023
  8. RED CELLS [Concomitant]
     Dosage: 2 U, every 3 weeks
     Dates: start: 20080811, end: 20091001

REACTIONS (5)
  - Plasma cell myeloma [Not Recovered/Not Resolved]
  - Condition aggravated [Not Recovered/Not Resolved]
  - Gastrointestinal disorder [Unknown]
  - Oral administration complication [Unknown]
  - Renal impairment [Recovering/Resolving]
